FAERS Safety Report 16203576 (Version 3)
Quarter: 2020Q2

REPORT INFORMATION
  Report Type: Spontaneous
  Country: US (occurrence: US)
  Receive Date: 20190416
  Receipt Date: 20200630
  Transmission Date: 20200713
  Serious: Yes (Death, Hospitalization)
  Sender: FDA-Public Use
  Company Number: US-JNJFOC-20190421478

PATIENT
  Age: 48 Year
  Sex: Female

DRUGS (3)
  1. XARELTO [Suspect]
     Active Substance: RIVAROXABAN
     Indication: PRODUCT USED FOR UNKNOWN INDICATION
     Route: 048
     Dates: start: 201511, end: 201604
  2. LOVENOX [Suspect]
     Active Substance: ENOXAPARIN SODIUM
     Route: 065
     Dates: end: 201601
  3. ASPRIN [Suspect]
     Active Substance: ASPIRIN
     Route: 065
     Dates: end: 201601

REACTIONS (2)
  - Death [Fatal]
  - Ovarian cyst ruptured [Unknown]

NARRATIVE: CASE EVENT DATE: 20160123
